FAERS Safety Report 9004784 (Version 5)
Quarter: 2013Q1

REPORT INFORMATION
  Report Type: Spontaneous
  Country: DK (occurrence: None)
  Receive Date: 20121227
  Receipt Date: 20130220
  Transmission Date: 20140127
  Serious: Yes (Other)
  Sender: FDA-Public Use
  Company Number: AUR-APL-2012-05487

PATIENT
  Age: 36 Year
  Sex: Female
  Weight: 74 kg

DRUGS (9)
  1. METFORMIN [Suspect]
     Indication: TYPE 2 DIABETES MELLITUS
     Dosage: 1000 MG (500 MG, 2 IN 1 D)
     Route: 048
     Dates: start: 2005
  2. SIMVASTATIN (SIMVASTATIN) [Suspect]
     Indication: CHOLESTEROSIS
     Route: 048
     Dates: start: 2006
  3. VANIQA [Suspect]
     Indication: HIRSUTISM
     Dosage: 2 DOSAGE FORMS (1 DOSAGE FORMS, 2 IN 1 D)
     Route: 061
     Dates: start: 20120528, end: 20121003
  4. SPIRONOLACTONE [Suspect]
     Indication: HORMONE THERAPY
     Dosage: 1 IN 1 D
     Route: 048
     Dates: start: 2011
  5. YASMIN (DROSPIRENONE W/ETHINYLESTRADIOL) [Concomitant]
  6. APROVEL (IRBESARTAN) [Concomitant]
  7. VICTOZA (LIRAGLUTIDE) [Concomitant]
  8. HJERTEMAGNYL (HJERTEMAGNYL /01043701/) [Concomitant]
  9. PINEX (PARACETAMOL) [Concomitant]

REACTIONS (3)
  - Abortion spontaneous [None]
  - Pregnancy on oral contraceptive [None]
  - Maternal exposure during pregnancy [None]
